FAERS Safety Report 9976065 (Version 1)
Quarter: 2014Q1

REPORT INFORMATION
  Report Type: Spontaneous
  Country: US (occurrence: US)
  Receive Date: 20140306
  Receipt Date: 20140306
  Transmission Date: 20141002
  Serious: Yes (Hospitalization, Other)
  Sender: FDA-Public Use
  Company Number: PHHY2014US024429

PATIENT
  Age: 60 Year
  Sex: Male

DRUGS (3)
  1. METFORMIN [Suspect]
     Indication: TYPE 2 DIABETES MELLITUS
     Dosage: 10 U, UNK
  2. INSULIN [Concomitant]
     Indication: TYPE 2 DIABETES MELLITUS
  3. PROTAMINE [Concomitant]
     Indication: TYPE 2 DIABETES MELLITUS

REACTIONS (3)
  - Metabolic acidosis [Recovering/Resolving]
  - Discomfort [Unknown]
  - Intentional overdose [Unknown]
